FAERS Safety Report 5275714-4 (Version None)
Quarter: 2007Q1

REPORT INFORMATION
  Report Type: 
  Country: None (occurrence: None)
  Receive Date: 20061213
  Receipt Date: 20060517
  Transmission Date: 20070707
  Serious: No
  Sender: FDA-Public Use
  Company Number: 2006UW09691

PATIENT
  Age: 32 Year
  Sex: Male

DRUGS (2)
  1. SEROQUEL [Suspect]
     Dosage: 200 MG; PO
     Route: 048
  2. H2 BLOCKER ^RATIOPHARM^ [Suspect]

REACTIONS (1)
  - PRIAPISM [None]
